FAERS Safety Report 23871858 (Version 1)
Quarter: 2024Q2

REPORT INFORMATION
  Report Type: Spontaneous
  Country: JP (occurrence: JP)
  Receive Date: 20240520
  Receipt Date: 20240520
  Transmission Date: 20240716
  Serious: Yes (Hospitalization, Other)
  Sender: FDA-Public Use
  Company Number: JP-TWI PHARMACEUTICAL, INC-2024SCTW000084

PATIENT

DRUGS (2)
  1. GUANFACINE HYDROCHLORIDE [Suspect]
     Active Substance: GUANFACINE HYDROCHLORIDE
     Indication: Attention deficit hyperactivity disorder
     Dosage: 2 MG, DAILY
     Route: 048
  2. GUANFACINE HYDROCHLORIDE [Suspect]
     Active Substance: GUANFACINE HYDROCHLORIDE
     Dosage: 40 DOSAGE FORM, SINGLE
     Route: 048

REACTIONS (5)
  - Toxicity to various agents [Recovered/Resolved]
  - Electrocardiogram ST segment elevation [Recovered/Resolved]
  - Depressed level of consciousness [Recovered/Resolved]
  - Sinus bradycardia [Recovered/Resolved]
  - Intentional overdose [Unknown]
